FAERS Safety Report 20748506 (Version 1)
Quarter: 2022Q2

REPORT INFORMATION
  Report Type: Other
  Country: None (occurrence: TH)
  Receive Date: 20220426
  Receipt Date: 20220426
  Transmission Date: 20220721
  Serious: Yes (Life-Threatening, Hospitalization, Other)
  Sender: FDA-Public Use
  Company Number: TH-ASPIRO PHARMA LTD-2128145

PATIENT
  Age: 32 Year
  Sex: Male
  Weight: 49 kg

DRUGS (3)
  1. LIDOCAINE HYDROCHLORIDE [Suspect]
     Active Substance: LIDOCAINE HYDROCHLORIDE
     Indication: Product used for unknown indication
     Route: 058
  2. EPINEPHRINE [Suspect]
     Active Substance: EPINEPHRINE
     Route: 058
  3. Ringer lactate solution [Concomitant]
     Route: 058

REACTIONS (2)
  - Local anaesthetic systemic toxicity [Recovering/Resolving]
  - Accidental overdose [Recovering/Resolving]
